FAERS Safety Report 7592528-0 (Version None)
Quarter: 2011Q3

REPORT INFORMATION
  Report Type: 
  Country: None (occurrence: None)
  Receive Date: 20110706
  Receipt Date: 20110623
  Transmission Date: 20111222
  Serious: Yes (Hospitalization)
  Sender: FDA-Public Use
  Company Number: CA-ELI_LILLY_AND_COMPANY-CA201106006786

PATIENT
  Sex: Male

DRUGS (5)
  1. ZYPREXA [Suspect]
     Indication: BIPOLAR DISORDER
     Dosage: 5 MG, QD
  2. FLUOXETINE HCL [Concomitant]
  3. HALDOL [Concomitant]
  4. ZYPREXA [Suspect]
     Dosage: 10 MG, QD
     Dates: start: 20030508
  5. ATIVAN [Concomitant]

REACTIONS (10)
  - HYPERTENSION [None]
  - HEART RATE DECREASED [None]
  - AORTIC ARTERIOSCLEROSIS [None]
  - AORTIC ANEURYSM [None]
  - ARTERIOSCLEROSIS [None]
  - RENAL FAILURE [None]
  - DIABETES MELLITUS [None]
  - BRONCHITIS [None]
  - ANGINA UNSTABLE [None]
  - DYSLIPIDAEMIA [None]
